FAERS Safety Report 21756960 (Version 1)
Quarter: 2022Q4

REPORT INFORMATION
  Report Type: Spontaneous
  Country: US (occurrence: None)
  Receive Date: 20221220
  Receipt Date: 20221220
  Transmission Date: 20230113
  Serious: No
  Sender: FDA-Public Use
  Company Number: 2022A397818

PATIENT
  Sex: Female
  Weight: 63 kg

DRUGS (1)
  1. BUDESONIDE\FORMOTEROL\GLYCOPYRRONIUM [Suspect]
     Active Substance: BUDESONIDE\FORMOTEROL\GLYCOPYRRONIUM
     Indication: Asthma
     Route: 055
     Dates: start: 202210, end: 20221129

REACTIONS (4)
  - Laryngitis [Not Recovered/Not Resolved]
  - Eye disorder [Unknown]
  - Dysphonia [Not Recovered/Not Resolved]
  - Chest pain [Unknown]
